FAERS Safety Report 7653102-0 (Version None)
Quarter: 2011Q3

REPORT INFORMATION
  Report Type: 
  Country: None (occurrence: None)
  Receive Date: 20110803
  Receipt Date: 20110802
  Transmission Date: 20111222
  Serious: Yes (Hospitalization)
  Sender: FDA-Public Use
  Company Number: ES-PFIZER INC-2011175405

PATIENT
  Age: 53 Year
  Sex: Male

DRUGS (4)
  1. EMPORTAL [Concomitant]
     Indication: CONSTIPATION PROPHYLAXIS
     Dosage: 10 G, 3X/DAY
     Route: 048
     Dates: start: 20110101, end: 20110413
  2. TRAZODONE HCL [Suspect]
     Indication: DEPRESSION
     Dosage: 100 MG, 1X/DAY
     Route: 048
     Dates: start: 20110101, end: 20110413
  3. VENLAFAXINE HCL [Suspect]
     Indication: DEPRESSION
     Dosage: 75 MG, 1X/DAY
     Route: 048
     Dates: start: 20110101, end: 20110413
  4. PLANTABEN [Concomitant]
     Indication: CONSTIPATION PROPHYLAXIS
     Dosage: 10 G, 3X/DAY
     Route: 048
     Dates: start: 20110101, end: 20110413

REACTIONS (2)
  - HEPATIC ENCEPHALOPATHY [None]
  - OEDEMA DUE TO HEPATIC DISEASE [None]
